FAERS Safety Report 5401174-6 (Version None)
Quarter: 2007Q3

REPORT INFORMATION
  Report Type: 
  Country: None (occurrence: None)
  Receive Date: 20070731
  Receipt Date: 20070724
  Transmission Date: 20080115
  Serious: Yes (Other)
  Sender: FDA-Public Use
  Company Number: PHNU2007DE02632

PATIENT
  Sex: Female

DRUGS (3)
  1. ZOMETA [Suspect]
     Indication: METASTASES TO BONE
     Dosage: 4 MG, QMO
     Route: 042
     Dates: start: 20061201, end: 20070601
  2. BONEFOS ^BOEHRINGER INGELHEIM^ [Suspect]
     Dosage: 1600 MG, QD
     Route: 048
     Dates: start: 20030501, end: 20061201
  3. SUNITINIB [Concomitant]
     Route: 065

REACTIONS (4)
  - JAW OPERATION [None]
  - OSTEONECROSIS [None]
  - PLASTIC SURGERY [None]
  - TOOTH EXTRACTION [None]
